FAERS Safety Report 17066074 (Version 1)
Quarter: 2019Q4

REPORT INFORMATION
  Report Type: Spontaneous
  Country: US (occurrence: US)
  Receive Date: 20191122
  Receipt Date: 20191122
  Transmission Date: 20200122
  Serious: No
  Sender: FDA-Public Use
  Company Number: US-PERRIGO-19US011064

PATIENT
  Age: 52 Year
  Sex: Male
  Weight: 88.44 kg

DRUGS (1)
  1. POLYETHYLENE GLYCOL 3350. [Suspect]
     Active Substance: POLYETHYLENE GLYCOL 3350
     Indication: OFF LABEL USE
     Dosage: 17 G, BID
     Route: 048
     Dates: start: 20190903, end: 20190905

REACTIONS (2)
  - Off label use [Recovered/Resolved]
  - Epistaxis [Recovered/Resolved]

NARRATIVE: CASE EVENT DATE: 20190903
